FAERS Safety Report 5423801-X (Version None)
Quarter: 2007Q3

REPORT INFORMATION
  Report Type: 
  Country: None (occurrence: None)
  Receive Date: 20070727
  Receipt Date: 20060622
  Transmission Date: 20080115
  Serious: Yes (Other)
  Sender: FDA-Public Use
  Company Number: THYM-10956

PATIENT
  Age: 71 Year
  Sex: Male
  Weight: 74.8435 kg

DRUGS (11)
  1. THYMOGLOBULIN [Suspect]
     Indication: RENAL TRANSPLANT
     Dosage: 100 MG BID IV
     Route: 042
     Dates: start: 20050824, end: 20050825
  2. PROGRAF [Concomitant]
  3. CELLCEPT [Concomitant]
  4. PREDNISONE [Concomitant]
  5. VALCYTE [Concomitant]
  6. BACTRIM [Concomitant]
  7. LOPRESSOR [Concomitant]
  8. MYCELEX [Concomitant]
  9. PEPCID [Concomitant]
  10. ZOCOR [Concomitant]
  11. MAG-OX [Concomitant]

REACTIONS (2)
  - DIABETES MELLITUS [None]
  - POST PROCEDURAL COMPLICATION [None]
